FAERS Safety Report 8241907-7 (Version None)
Quarter: 2012Q1

REPORT INFORMATION
  Report Type: 
  Country: None (occurrence: None)
  Receive Date: 20120328
  Receipt Date: 20120320
  Transmission Date: 20120608
  Serious: Yes (Death, Hospitalization, Other)
  Sender: FDA-Public Use
  Company Number: US-ACTELION-A-US2011-56956

PATIENT

DRUGS (10)
  1. EPOPROSTENOL SODIUM [Suspect]
     Dosage: 51 NG/KG, PER MIN
     Route: 042
     Dates: start: 20110705
  2. TRACLEER [Suspect]
     Indication: PULMONARY ARTERIAL HYPERTENSION
     Dosage: 125 MG, BID
     Route: 048
  3. FLOLAN [Suspect]
  4. SILDENAFIL [Concomitant]
  5. FERROUS SULFATE TAB [Concomitant]
  6. POTASSIUM CHLORIDE [Concomitant]
  7. EPOPROSTENOL SODIUM [Suspect]
     Indication: PULMONARY ARTERIAL HYPERTENSION
     Dosage: 32 NG/KG, PER MIN
     Route: 042
     Dates: start: 20110902
  8. LASIX [Concomitant]
  9. VIAGRA [Concomitant]
  10. ALDACTONE [Concomitant]

REACTIONS (10)
  - DEVICE RELATED INFECTION [None]
  - OEDEMA PERIPHERAL [None]
  - DYSPNOEA [None]
  - FLUID OVERLOAD [None]
  - CARDIAC FAILURE [None]
  - RIGHT VENTRICULAR FAILURE [None]
  - DEATH [None]
  - ABDOMINAL DISTENSION [None]
  - ASCITES [None]
  - PARACENTESIS [None]
